FAERS Safety Report 18180195 (Version 2)
Quarter: 2020Q3

REPORT INFORMATION
  Report Type: Spontaneous
  Country: JP (occurrence: JP)
  Receive Date: 20200821
  Receipt Date: 20200908
  Transmission Date: 20201103
  Serious: Yes (Hospitalization, Other)
  Sender: FDA-Public Use
  Company Number: JP-VIFOR (INTERNATIONAL) INC.-VIT-2020-08742

PATIENT
  Age: 89 Year
  Sex: Female
  Weight: 45 kg

DRUGS (9)
  1. ACTONEL [Concomitant]
     Active Substance: RISEDRONATE SODIUM
     Dosage: AT GETTING UP
     Route: 048
  2. SOFALCONE [Concomitant]
     Active Substance: SOFALCONE
     Route: 048
     Dates: start: 20010407
  3. MIRCERA [Suspect]
     Active Substance: METHOXY POLYETHYLENE GLYCOL-EPOETIN BETA
     Indication: NEPHROGENIC ANAEMIA
     Route: 058
     Dates: start: 20200529, end: 20200612
  4. SALOBEL [Concomitant]
     Active Substance: ALLOPURINOL
     Route: 048
     Dates: start: 20180530
  5. FAMOTIDINE. [Concomitant]
     Active Substance: FAMOTIDINE
     Route: 048
     Dates: start: 20180407
  6. LOQOA [Concomitant]
     Route: 061
  7. NORVASC [Concomitant]
     Active Substance: AMLODIPINE BESYLATE
     Route: 048
     Dates: start: 20010407
  8. OLMESARTAN OD [Concomitant]
     Active Substance: OLMESARTAN MEDOXOMIL
     Route: 048
  9. EDIROL [Suspect]
     Active Substance: ELDECALCITOL
     Indication: OSTEOPOROSIS
     Route: 048
     Dates: start: 20010407, end: 20200614

REACTIONS (4)
  - Decreased appetite [Recovering/Resolving]
  - Hypercalcaemia [Unknown]
  - Chronic kidney disease [Recovering/Resolving]
  - Malaise [Recovering/Resolving]

NARRATIVE: CASE EVENT DATE: 2020
